FAERS Safety Report 19908555 (Version 3)
Quarter: 2021Q4

REPORT INFORMATION
  Report Type: Report from Study
  Country: CO (occurrence: CO)
  Receive Date: 20211001
  Receipt Date: 20211222
  Transmission Date: 20220303
  Serious: Yes (Death, Other)
  Sender: FDA-Public Use
  Company Number: CO-BAYER-2021A215313

PATIENT
  Age: 63 Year
  Sex: Female

DRUGS (2)
  1. NEXAVAR [Suspect]
     Active Substance: SORAFENIB
     Indication: Hepatocellular carcinoma
     Dosage: 800 MG DAILY
     Route: 048
     Dates: start: 20201106, end: 20210921
  2. NEXAVAR [Suspect]
     Active Substance: SORAFENIB
     Indication: Hepatic cancer metastatic

REACTIONS (2)
  - Ascites [Fatal]
  - Hepatic steatosis [None]

NARRATIVE: CASE EVENT DATE: 20210901
